FAERS Safety Report 8899928 (Version 1)
Quarter: 2012Q4

REPORT INFORMATION
  Report Type: 
  Country: DE (occurrence: DE)
  Receive Date: 20121109
  Receipt Date: 20121109
  Transmission Date: 20130627
  Serious: Yes (Life-Threatening)
  Sender: FDA-Public Use
  Company Number: GXKR2012DE003428

PATIENT

DRUGS (3)
  1. METHOTREXATE [Suspect]
     Indication: POLYARTHRITIS
     Dosage: 10 mg, QW
     Route: 058
  2. FOLSAEURE [Concomitant]
     Dosage: 5 mg, QW (24 hours after methotrexate-injection)
     Route: 048
  3. IBUPROFEN [Concomitant]
     Dosage: 1200 mg/day
     Route: 048

REACTIONS (3)
  - Suicidal ideation [Recovered/Resolved]
  - Amnesia [Recovered/Resolved]
  - Tachycardia [Recovered/Resolved]
